FAERS Safety Report 4450401-0 (Version None)
Quarter: 2004Q3

REPORT INFORMATION
  Report Type: 
  Country: None (occurrence: None)
  Receive Date: 20040915
  Receipt Date: 20040910
  Transmission Date: 20050211
  Serious: Yes (Other)
  Sender: FDA-Public Use
  Company Number: 002675

PATIENT
  Age: 54 Year
  Sex: Female

DRUGS (3)
  1. MEDROXYPROGESTERONE ACETATE [Suspect]
     Dates: start: 20020615, end: 20020801
  2. PREMARIN [Suspect]
     Dates: start: 20020517, end: 20020801
  3. MEDROXYPROGESTERONE ACETATE [Suspect]
     Dates: start: 19990529, end: 20020801

REACTIONS (1)
  - BREAST CANCER FEMALE [None]
